FAERS Safety Report 6491500-1 (Version None)
Quarter: 2009Q4

REPORT INFORMATION
  Report Type: 
  Country: None (occurrence: None)
  Receive Date: 20091211
  Receipt Date: 20091130
  Transmission Date: 20100525
  Serious: Yes (Other)
  Sender: FDA-Public Use
  Company Number: FR-GENENTECH-252890

PATIENT
  Sex: Female
  Weight: 83 kg

DRUGS (7)
  1. RITUXIMAB [Suspect]
     Indication: ACUTE LYMPHOCYTIC LEUKAEMIA
     Dosage: 730 MG, UNK
     Route: 065
     Dates: start: 20071113
  2. ASPARAGINASE [Suspect]
     Indication: ACUTE LYMPHOCYTIC LEUKAEMIA
     Dosage: 11640 UNIT, UNK
     Route: 042
     Dates: start: 20071120
  3. BACTRIM DS [Concomitant]
     Indication: PROPHYLAXIS
     Dates: start: 20071113
  4. NOXAFIL [Concomitant]
     Indication: PROPHYLAXIS
     Dates: start: 20071113
  5. TAZOCILLINE [Concomitant]
     Indication: DRUG USE FOR UNKNOWN INDICATION
  6. VANCOMYCIN [Concomitant]
     Indication: DRUG USE FOR UNKNOWN INDICATION
  7. ZOVIRAX [Concomitant]
     Indication: DRUG USE FOR UNKNOWN INDICATION

REACTIONS (2)
  - ASPARTATE AMINOTRANSFERASE ABNORMAL [None]
  - HEPATITIS ACUTE [None]
